FAERS Safety Report 8912772 (Version 1)
Quarter: 2012Q4

REPORT INFORMATION
  Report Type: 
  Country: PT (occurrence: PT)
  Receive Date: 20121116
  Receipt Date: 20121116
  Transmission Date: 20130627
  Serious: Yes (Life-Threatening)
  Sender: FDA-Public Use
  Company Number: PT-TEVA-369095ISR

PATIENT
  Age: 83 Year
  Sex: Male
  Weight: 75 kg

DRUGS (9)
  1. TANSULOSIN [Suspect]
     Indication: BENIGN PROSTATIC HYPERPLASIA
     Dosage: .4 Milligram Daily;
     Route: 048
     Dates: start: 20120731, end: 20120804
  2. DAROB [Interacting]
     Indication: ATRIAL FIBRILLATION
     Dosage: 80 Milligram Daily;
     Route: 048
  3. VARFINE [Concomitant]
     Indication: PROPHYLAXIS
     Route: 048
  4. CLOPIDOGREL [Concomitant]
     Indication: PROPHYLAXIS
     Dosage: 75 Milligram Daily;
     Route: 048
  5. SINVASTATINA [Concomitant]
     Indication: HYPERCHOLESTEROLAEMIA
     Dosage: 20 Milligram Daily;
     Route: 048
  6. ESOMEPRAZOL CICLUM [Concomitant]
     Indication: PROPHYLAXIS
     Dosage: 20 Milligram Daily;
     Route: 048
  7. FINASTERIDA [Concomitant]
     Indication: BENIGN PROSTATIC HYPERPLASIA
     Dosage: 5 Milligram Daily;
     Route: 048
  8. TRIMETAZIDINA [Concomitant]
     Indication: PROPHYLAXIS
     Dosage: 40 Milligram Daily;
     Route: 048
  9. DITROPAN [Concomitant]
     Indication: URINARY TRACT DISORDER
     Dosage: 5 Milligram Daily;
     Route: 048

REACTIONS (2)
  - Orthostatic hypotension [Recovered/Resolved]
  - Drug interaction [Recovered/Resolved]
